FAERS Safety Report 4869037-2 (Version None)
Quarter: 2005Q4

REPORT INFORMATION
  Report Type: 
  Country: None (occurrence: None)
  Receive Date: 20051223
  Receipt Date: 20051220
  Transmission Date: 20060501
  Serious: Yes (Life-Threatening, Hospitalization)
  Sender: FDA-Public Use
  Company Number: 2005-11-1188

PATIENT
  Age: 48 Year
  Sex: Female
  Weight: 54 kg

DRUGS (4)
  1. PEG-INTRON [Suspect]
     Indication: HEPATITIS C
     Dosage: 80 MCG QW SUBCUTANEOUS
     Route: 058
     Dates: start: 20050706, end: 20050921
  2. REBETOL [Suspect]
     Dosage: 600-200*MG ORAL
     Route: 048
     Dates: start: 20050706, end: 20050913
  3. REBETOL [Suspect]
     Dosage: 600-200*MG ORAL
     Route: 048
     Dates: start: 20050706, end: 20050927
  4. REBETOL [Suspect]
     Dosage: 600-200*MG ORAL
     Route: 048
     Dates: start: 20050914, end: 20050927

REACTIONS (5)
  - ANAEMIA [None]
  - AORTIC DISSECTION [None]
  - ATELECTASIS [None]
  - ATROPHY [None]
  - LOSS OF CONSCIOUSNESS [None]
